FAERS Safety Report 15066207 (Version 1)
Quarter: 2018Q2

REPORT INFORMATION
  Report Type: Spontaneous
  Country: ZA (occurrence: ZA)
  Receive Date: 20180626
  Receipt Date: 20180626
  Transmission Date: 20180711
  Serious: Yes (Other)
  Sender: FDA-Public Use
  Company Number: ZA-BAYER-2018-116304

PATIENT
  Sex: Male

DRUGS (1)
  1. CIPROFLOXACIN. [Suspect]
     Active Substance: CIPROFLOXACIN
     Indication: UPPER RESPIRATORY TRACT INFECTION
     Dosage: 250 MG, BID, 7 DAYS
     Dates: start: 20180214

REACTIONS (11)
  - Hypoaesthesia [None]
  - Nerve injury [None]
  - Polymyalgia rheumatica [None]
  - Pain in extremity [None]
  - Peripheral swelling [None]
  - Gait inability [None]
  - Musculoskeletal pain [None]
  - Paraesthesia [None]
  - Carpal tunnel syndrome [None]
  - Neck pain [None]
  - Dysstasia [None]

NARRATIVE: CASE EVENT DATE: 20180612
